FAERS Safety Report 14970451 (Version 1)
Quarter: 2018Q2

REPORT INFORMATION
  Report Type: Spontaneous
  Country: US (occurrence: US)
  Receive Date: 20180604
  Receipt Date: 20180604
  Transmission Date: 20180711
  Serious: No
  Sender: FDA-Public Use
  Company Number: US-ALLERGAN-1816560US

PATIENT
  Age: 43 Year
  Sex: Female

DRUGS (2)
  1. KYBELLA [Suspect]
     Active Substance: DEOXYCHOLIC ACID
     Indication: FAT TISSUE INCREASED
     Dosage: UNK, SINGLE
     Route: 058
     Dates: start: 20170327, end: 20170327
  2. KYBELLA [Suspect]
     Active Substance: DEOXYCHOLIC ACID
     Dosage: 3.8 UNK, UNK
     Route: 058
     Dates: start: 20170711, end: 20170711

REACTIONS (2)
  - Weight increased [Unknown]
  - Fat tissue increased [Not Recovered/Not Resolved]
